FAERS Safety Report 8679394 (Version 6)
Quarter: 2012Q4

REPORT INFORMATION
  Report Type: 
  Country: US (occurrence: US)
  Receive Date: 20120724
  Receipt Date: 20121001
  Transmission Date: 20130627
  Serious: Yes (Other)
  Sender: FDA-Public Use
  Company Number: US-ASTELLAS-2012US006137

PATIENT
  Age: 36 Year
  Sex: Male
  Weight: 59 kg

DRUGS (29)
  1. PROGRAF [Suspect]
     Indication: RENAL TRANSPLANT
     Dosage: 6 mg, UID/QD
     Route: 048
     Dates: start: 20050708
  2. PROGRAF [Suspect]
     Dosage: 3 mg, UID/QD
     Route: 048
     Dates: start: 20120406
  3. PROGRAF [Suspect]
     Dosage: 3 mg AM, 4 mg PM
     Route: 065
  4. PROGRAF [Suspect]
     Dosage: 2 mg AM, 3 mg PM
     Route: 065
  5. INFLUENZA VACCINES [Suspect]
     Indication: PROPHYLAXIS
     Dosage: UNK
     Route: 065
     Dates: start: 2005
  6. PNEUMOVAX [Suspect]
     Indication: PROPHYLAXIS
     Dosage: UNK
     Route: 065
     Dates: start: 20051020
  7. NORVASC [Concomitant]
     Indication: PRODUCT USED FOR UNKNOWN INDICATION
     Dosage: 10 mg, UID/QD
     Route: 065
  8. NORVASC [Concomitant]
     Dosage: 15 mg, UID/QD
     Route: 065
  9. LIPITOR [Concomitant]
     Indication: PRODUCT USED FOR UNKNOWN INDICATION
     Dosage: 10 mg, UID/QD
     Route: 065
  10. LIPITOR [Concomitant]
     Dosage: 20 mg, UID/QD
     Route: 065
  11. IMURAN                             /00001501/ [Concomitant]
     Indication: PRODUCT USED FOR UNKNOWN INDICATION
     Dosage: 75 mg, UID/QD
     Route: 065
  12. CALCIUM + VITAMIN D                /01483701/ [Concomitant]
     Indication: PRODUCT USED FOR UNKNOWN INDICATION
     Dosage: UNK
     Route: 065
  13. BACTRIM [Concomitant]
     Indication: PRODUCT USED FOR UNKNOWN INDICATION
     Dosage: 1 DF, UID/QD
     Route: 065
  14. ASPIRIN [Concomitant]
     Indication: PRODUCT USED FOR UNKNOWN INDICATION
     Dosage: 81 mg, UID/QD
     Route: 065
  15. LOPRESSOR [Concomitant]
     Indication: PRODUCT USED FOR UNKNOWN INDICATION
     Dosage: 75 mg, bid
     Route: 065
  16. LOPRESSOR [Concomitant]
     Dosage: 150 mg, bid
     Route: 048
  17. PRILOSEC                           /00661201/ [Concomitant]
     Indication: PRODUCT USED FOR UNKNOWN INDICATION
     Dosage: 20 mg, UID/QD
     Route: 065
  18. PREDNISONE [Concomitant]
     Indication: PRODUCT USED FOR UNKNOWN INDICATION
     Dosage: 5 mg, UID/QD
     Route: 065
  19. PREDNISONE [Concomitant]
     Dosage: 6 mg, UID/QD
     Route: 065
  20. PREDNISONE [Concomitant]
     Dosage: 10 mg, UID/QD
     Route: 065
  21. LASIX                              /00032601/ [Concomitant]
     Indication: PRODUCT USED FOR UNKNOWN INDICATION
     Dosage: 20 mg, UID/QD
     Route: 065
  22. HUMALOG [Concomitant]
     Indication: PRODUCT USED FOR UNKNOWN INDICATION
     Dosage: Sliding scale
     Route: 065
  23. ISORDIL [Concomitant]
     Indication: PRODUCT USED FOR UNKNOWN INDICATION
     Dosage: 30 mg, UID/QD
     Route: 065
  24. LANTUS [Concomitant]
     Indication: PRODUCT USED FOR UNKNOWN INDICATION
     Dosage: 30 U, UID/QD
     Route: 065
  25. MAGNESIUM [Concomitant]
     Indication: PRODUCT USED FOR UNKNOWN INDICATION
     Dosage: 1 F, tid
     Route: 065
  26. PROTEIN SUPPLEMENTS [Concomitant]
     Indication: PRODUCT USED FOR UNKNOWN INDICATION
     Dosage: 1 DF, tid
     Route: 065
  27. CELLCEPT                           /01275102/ [Concomitant]
     Indication: PRODUCT USED FOR UNKNOWN INDICATION
     Dosage: 500 mg, bid
     Route: 048
  28. ASAPHICS [Concomitant]
     Indication: PRODUCT USED FOR UNKNOWN INDICATION
     Dosage: 20 mg, UID/QD
     Route: 065
  29. PLAVIX [Concomitant]
     Indication: PRODUCT USED FOR UNKNOWN INDICATION
     Dosage: 75 mg, UID/QD
     Route: 065

REACTIONS (9)
  - Pancreas transplant [Unknown]
  - Dental caries [Recovered/Resolved]
  - Fear of weight gain [Unknown]
  - Infection [Unknown]
  - Pyrexia [Recovered/Resolved]
  - Fatigue [Unknown]
  - Malaise [Unknown]
  - Headache [Unknown]
  - Nausea [Unknown]
